FAERS Safety Report 23838823 (Version 2)
Quarter: 2024Q2

REPORT INFORMATION
  Report Type: Report from Study
  Country: US (occurrence: US)
  Receive Date: 20240509
  Receipt Date: 20240604
  Transmission Date: 20240716
  Serious: Yes (Hospitalization)
  Sender: FDA-Public Use
  Company Number: US-ARGENX-2024-ARGX-US001238

PATIENT

DRUGS (1)
  1. VYVGART HYTRULO [Suspect]
     Active Substance: EFGARTIGIMOD ALFA\HYALURONIDASE-QVFC
     Indication: Myasthenia gravis
     Dosage: 10 MG/KG
     Route: 058
     Dates: start: 20230713, end: 20240416

REACTIONS (4)
  - Procedural pain [Unknown]
  - Intervertebral disc operation [Unknown]
  - Urinary tract infection [Unknown]
  - Migraine [Unknown]

NARRATIVE: CASE EVENT DATE: 20240401
